FAERS Safety Report 7626960-3 (Version None)
Quarter: 2011Q3

REPORT INFORMATION
  Report Type: 
  Country: None (occurrence: None)
  Receive Date: 20110721
  Receipt Date: 20110719
  Transmission Date: 20111222
  Serious: Yes (Other)
  Sender: FDA-Public Use
  Company Number: US-PFIZER INC-2011163900

PATIENT
  Sex: Female
  Weight: 117.91 kg

DRUGS (4)
  1. VIMPAT [Concomitant]
     Dosage: UNK
  2. NAPROXEN [Concomitant]
     Dosage: UNK
  3. TRILEPTAL [Concomitant]
     Dosage: UNK
  4. LYRICA [Suspect]
     Indication: EPILEPSY
     Dosage: 50 MG, 1X/DAY
     Route: 048
     Dates: start: 20110710

REACTIONS (2)
  - CHEST DISCOMFORT [None]
  - MUSCULOSKELETAL DISCOMFORT [None]
